FAERS Safety Report 5121201-3 (Version None)
Quarter: 2006Q4

REPORT INFORMATION
  Report Type: 
  Country: None (occurrence: None)
  Receive Date: 20061002
  Receipt Date: 20060922
  Transmission Date: 20070319
  Serious: Yes (Other)
  Sender: FDA-Public Use
  Company Number: US-2005-022588

PATIENT
  Age: 26 Year
  Sex: Female

DRUGS (1)
  1. MIRENA [Suspect]
     Indication: CONTRACEPTION
     Dosage: 20 UG/DAY, CONT, INTRA-UTERINE
     Route: 015
     Dates: start: 20030801, end: 20050101

REACTIONS (4)
  - AMENORRHOEA [None]
  - DRUG EXPOSURE BEFORE PREGNANCY [None]
  - HABITUAL ABORTION [None]
  - PREGNANCY [None]
